FAERS Safety Report 10442513 (Version 1)
Quarter: 2014Q3

REPORT INFORMATION
  Report Type: Spontaneous
  Country: JP (occurrence: JP)
  Receive Date: 20140909
  Receipt Date: 20140909
  Transmission Date: 20150326
  Serious: Yes (Other)
  Sender: FDA-Public Use
  Company Number: PHHY2011JP122773

PATIENT
  Age: 61 Year
  Sex: Female

DRUGS (4)
  1. SIMULECT [Suspect]
     Active Substance: BASILIXIMAB
     Indication: KIDNEY TRANSPLANT REJECTION
     Dates: start: 20110507
  2. TACROLIMUS. [Concomitant]
     Active Substance: TACROLIMUS
  3. METHYLPREDNISOLONE [Concomitant]
     Active Substance: METHYLPREDNISOLONE
  4. MMF [Concomitant]

REACTIONS (2)
  - Blood creatinine increased [Unknown]
  - Arterial stenosis [Unknown]

NARRATIVE: CASE EVENT DATE: 20110803
